FAERS Safety Report 5585359-4 (Version None)
Quarter: 2008Q1

REPORT INFORMATION
  Report Type: 
  Country: None (occurrence: None)
  Receive Date: 20080104
  Receipt Date: 20080104
  Transmission Date: 20080703
  Serious: Yes (Death)
  Sender: FDA-Public Use
  Company Number: None

PATIENT
  Age: 52 Year
  Sex: Male

DRUGS (2)
  1. CEFTRIAXONE [Suspect]
     Indication: MENINGITIS
     Dosage: 1 GRAM  Q 12H   IV
     Route: 042
     Dates: start: 20070713, end: 20070716
  2. CALCIUM GLUCONATE / LACTATED RINGERS [Suspect]
     Indication: INFECTION
     Dosage: 10 MEQ  X4  IV - ALSO LACTATED RINGERS
     Route: 042
     Dates: start: 20070714, end: 20070716

REACTIONS (5)
  - ACUTE HEPATIC FAILURE [None]
  - BLOOD AMYLASE INCREASED [None]
  - BLOOD CALCIUM DECREASED [None]
  - BLOOD CREATINE PHOSPHOKINASE INCREASED [None]
  - PLATELET COUNT DECREASED [None]
